FAERS Safety Report 20265572 (Version 1)
Quarter: 2021Q4

REPORT INFORMATION
  Report Type: Spontaneous
  Country: US (occurrence: None)
  Receive Date: 20211231
  Receipt Date: 20211231
  Transmission Date: 20220303
  Serious: No
  Sender: FDA-Public Use
  Company Number: None

PATIENT
  Age: 52 Year
  Sex: Male
  Weight: 132.75 kg

DRUGS (1)
  1. AMITRIPTYLINE [Suspect]
     Active Substance: AMITRIPTYLINE
     Indication: Insomnia
     Dosage: FREQUENCY : AT BEDTIME;?
     Route: 048
     Dates: start: 20211113, end: 20211203

REACTIONS (3)
  - Heart rate increased [None]
  - Taste disorder [None]
  - Product substitution issue [None]

NARRATIVE: CASE EVENT DATE: 20211210
